FAERS Safety Report 24791499 (Version 2)
Quarter: 2025Q1

REPORT INFORMATION
  Report Type: Spontaneous
  Country: US (occurrence: US)
  Receive Date: 20241231
  Receipt Date: 20250205
  Transmission Date: 20250409
  Serious: No
  Sender: AMGEN
  Company Number: US-PFIZER INC-202400333377

PATIENT
  Age: 6 Decade
  Sex: Female

DRUGS (1)
  1. ENBREL [Suspect]
     Active Substance: ETANERCEPT
     Indication: Product used for unknown indication
     Route: 065
     Dates: start: 2012, end: 2014

REACTIONS (1)
  - Drug ineffective [Unknown]
